FAERS Safety Report 24840302 (Version 1)
Quarter: 2025Q1

REPORT INFORMATION
  Report Type: Spontaneous
  Country: US (occurrence: US)
  Receive Date: 20250114
  Receipt Date: 20250114
  Transmission Date: 20250408
  Serious: No
  Sender: MYLAN
  Company Number: US-MYLANLABS-2025M1002834

PATIENT
  Age: 90 Year
  Sex: Male
  Weight: 75 kg

DRUGS (1)
  1. ATORVASTATIN CALCIUM [Suspect]
     Active Substance: ATORVASTATIN CALCIUM
     Indication: Blood cholesterol
     Dosage: 20 MILLIGRAM, 3XW (THREE TIMES WEEKLY)
     Route: 048

REACTIONS (1)
  - Off label use [Unknown]
